FAERS Safety Report 21452719 (Version 1)
Quarter: 2022Q4

REPORT INFORMATION
  Report Type: Spontaneous
  Country: KR (occurrence: KR)
  Receive Date: 20221013
  Receipt Date: 20221013
  Transmission Date: 20230113
  Serious: Yes (Other)
  Sender: FDA-Public Use
  Company Number: KR-BoehringerIngelheim-2022-BI-196132

PATIENT

DRUGS (1)
  1. ALTEPLASE [Suspect]
     Active Substance: ALTEPLASE
     Indication: Cerebrovascular accident
     Route: 065

REACTIONS (2)
  - Haemorrhage [Unknown]
  - Unintentional use for unapproved indication [Unknown]

NARRATIVE: CASE EVENT DATE: 20221007
